FAERS Safety Report 7128389-3 (Version None)
Quarter: 2010Q4

REPORT INFORMATION
  Report Type: 
  Country: None (occurrence: None)
  Receive Date: 20101112
  Receipt Date: 20101028
  Transmission Date: 20110411
  Serious: Yes (Other)
  Sender: FDA-Public Use
  Company Number: 2010P1002286

PATIENT
  Age: 60 Year
  Sex: Male
  Weight: 88.905 kg

DRUGS (6)
  1. SULFAMETHOXAZOLE AND TRIMETHOPRIM [Suspect]
     Indication: SINUSITIS
     Dosage: 2 TABLETS;TID;PO
     Route: 048
     Dates: start: 20101005, end: 20101008
  2. HYDROCHLOROTHIAZIDE [Concomitant]
  3. ALBUTEROL INHALER [Concomitant]
  4. OMEPRAZOLE [Concomitant]
  5. OXYCODONE HCL [Concomitant]
  6. PREV MEDS [Concomitant]

REACTIONS (13)
  - ABDOMINAL DISCOMFORT [None]
  - BACK PAIN [None]
  - CHEST DISCOMFORT [None]
  - CHEST PAIN [None]
  - DYSPNOEA [None]
  - GASTRIC DISORDER [None]
  - HYPERHIDROSIS [None]
  - INCREASED APPETITE [None]
  - INITIAL INSOMNIA [None]
  - MUSCULOSKELETAL PAIN [None]
  - NAUSEA [None]
  - NECK PAIN [None]
  - WEIGHT INCREASED [None]
